FAERS Safety Report 5122012-5 (Version None)
Quarter: 2006Q4

REPORT INFORMATION
  Report Type: 
  Country: None (occurrence: None)
  Receive Date: 20061006
  Receipt Date: 20060504
  Transmission Date: 20070319
  Serious: Yes (Disabling, Other)
  Sender: FDA-Public Use
  Company Number: PHHO2006FR07171

PATIENT
  Age: 81 Year
  Sex: Female
  Weight: 63 kg

DRUGS (6)
  1. ACLASTA [Suspect]
     Indication: OSTEOPOROSIS POSTMENOPAUSAL
     Dosage: 5 MG, ONCE YEARLY
     Route: 042
     Dates: start: 20060414
  2. CALCIUM GLUCONATE [Concomitant]
     Indication: OSTEOPOROSIS POSTMENOPAUSAL
  3. VITAMIN D [Concomitant]
     Indication: OSTEOPOROSIS POSTMENOPAUSAL
  4. LIPANTHYL [Concomitant]
     Indication: HYPERCHOLESTEROLAEMIA
     Dosage: 160 MG, QD
     Route: 048
  5. TANAKAN [Concomitant]
     Indication: PROPHYLAXIS
     Dosage: 1 TAB, THREE PER DAY
     Route: 048
  6. SECTRAL [Concomitant]
     Indication: TINNITUS
     Dosage: 200 MG, QD
     Route: 048

REACTIONS (14)
  - ABDOMINAL PAIN [None]
  - C-REACTIVE PROTEIN INCREASED [None]
  - CHILLS [None]
  - CONCOMITANT DISEASE PROGRESSION [None]
  - DEAFNESS BILATERAL [None]
  - DYSPNOEA [None]
  - FALL [None]
  - FIBRIN D DIMER INCREASED [None]
  - GAIT DISTURBANCE [None]
  - GAMMA-GLUTAMYLTRANSFERASE INCREASED [None]
  - OTOTOXICITY [None]
  - PAIN [None]
  - PYREXIA [None]
  - VERTIGO [None]
